FAERS Safety Report 18297959 (Version 1)
Quarter: 2020Q3

REPORT INFORMATION
  Report Type: Spontaneous
  Country: FR (occurrence: FR)
  Receive Date: 20200922
  Receipt Date: 20200922
  Transmission Date: 20201103
  Serious: Yes (Other)
  Sender: FDA-Public Use
  Company Number: FR-BRISTOL-MYERS SQUIBB COMPANY-BMS-2020-075719

PATIENT
  Age: 77 Year
  Sex: Male
  Weight: 96 kg

DRUGS (7)
  1. ELIQUIS [Suspect]
     Active Substance: APIXABAN
     Indication: CEREBROVASCULAR ACCIDENT PROPHYLAXIS
     Dosage: 10 MILLIGRAM, DAILY
     Route: 048
     Dates: start: 20200904, end: 20200907
  2. ATORVASTATINE ARROW [Suspect]
     Active Substance: ATORVASTATIN
     Indication: CORONARY ANGIOPLASTY
     Dosage: 40 MILLIGRAM, DAILY
     Route: 048
     Dates: start: 20200904, end: 20200907
  3. HEPARINE CHOAY [Suspect]
     Active Substance: HEPARIN SODIUM
     Indication: ANGIOCARDIOGRAM
     Dosage: 5000 INTERNATIONAL UNIT (1 TOTAL)
     Route: 042
     Dates: start: 20200903, end: 20200903
  4. RISORDAN L.P. [Suspect]
     Active Substance: ISOSORBIDE DINITRATE
     Indication: ANGIOCARDIOGRAM
     Dosage: 3 MILLIGRAM (1 TOTAL)
     Route: 011
     Dates: start: 20200903, end: 20200903
  5. ISOPTINE [Suspect]
     Active Substance: VERAPAMIL HYDROCHLORIDE
     Indication: ANGIOCARDIOGRAM
     Dosage: 2.5 MILLIGRAM (1 TOTAL)
     Route: 042
     Dates: start: 20200903, end: 20200903
  6. PLAVIX [Suspect]
     Active Substance: CLOPIDOGREL BISULFATE
     Indication: CORONARY ANGIOPLASTY
     Dosage: 75 MILLIGRAM, DAILY (DOSE DE CHARGE DE 300 MG PUIS 75 MG/J   )
     Route: 048
     Dates: start: 20200902, end: 20200907
  7. XENETIX [Suspect]
     Active Substance: IOBITRIDOL
     Indication: ANGIOCARDIOGRAM
     Dosage: 1 (UNITS NOT SPECIFIED)
     Route: 013
     Dates: start: 20200903, end: 20200903

REACTIONS (1)
  - Rash maculo-papular [Not Recovered/Not Resolved]

NARRATIVE: CASE EVENT DATE: 20200906
